FAERS Safety Report 12454684 (Version 1)
Quarter: 2016Q2

REPORT INFORMATION
  Report Type: Spontaneous
  Country: US (occurrence: None)
  Receive Date: 20160609
  Receipt Date: 20160609
  Transmission Date: 20160815
  Serious: Yes (Life-Threatening, Hospitalization, Disabling, Other)
  Sender: FDA-Public Use
  Company Number: None

PATIENT
  Age: 64 Year
  Sex: Male
  Weight: 57.15 kg

DRUGS (5)
  1. AVASTIN [Suspect]
     Active Substance: BEVACIZUMAB
  2. HYDROMORPHONE [Concomitant]
     Active Substance: HYDROMORPHONE
  3. TYLONOL [Concomitant]
  4. LORAZEPAM. [Concomitant]
     Active Substance: LORAZEPAM
  5. METOPROLOL. [Concomitant]
     Active Substance: METOPROLOL

REACTIONS (9)
  - Lethargy [None]
  - Heart rate increased [None]
  - Dizziness [None]
  - Depression [None]
  - Confusional state [None]
  - Cerebrovascular accident [None]
  - Dyspnoea [None]
  - Hallucination [None]
  - Activities of daily living impaired [None]
